FAERS Safety Report 8280124-1 (Version None)
Quarter: 2012Q2

REPORT INFORMATION
  Report Type: 
  Country: None (occurrence: None)
  Receive Date: 20120412
  Receipt Date: 20120215
  Transmission Date: 20120825
  Serious: No
  Sender: FDA-Public Use
  Company Number: US-ASTRAZENECA-2012SE10393

PATIENT
  Sex: Female

DRUGS (4)
  1. NEXIUM [Suspect]
     Indication: GASTROOESOPHAGEAL REFLUX DISEASE
     Dosage: DAILY
     Route: 048
  2. NEXIUM [Suspect]
     Indication: HIATUS HERNIA
     Dosage: DAILY
     Route: 048
  3. NEXIUM [Suspect]
     Indication: GASTRITIS
     Dosage: DAILY
     Route: 048
  4. PRILOSEC [Suspect]
     Route: 048

REACTIONS (2)
  - OFF LABEL USE [None]
  - OSTEOPOROSIS [None]
